FAERS Safety Report 24731054 (Version 1)
Quarter: 2024Q4

REPORT INFORMATION
  Report Type: Spontaneous
  Country: CN (occurrence: CN)
  Receive Date: 20241213
  Receipt Date: 20241213
  Transmission Date: 20250115
  Serious: Yes (Other)
  Sender: RANBAXY
  Company Number: CN-SUN PHARMACEUTICAL INDUSTRIES LTD-2024R1-484144

PATIENT
  Age: 48 Year
  Sex: Female

DRUGS (2)
  1. CAPECITABINE [Suspect]
     Active Substance: CAPECITABINE
     Indication: Lymphangiosis carcinomatosa
     Dosage: 1.5 GRAM, BID, DAYS 1 TO 14 OF A 3-WEEK CYCLE
     Route: 048
     Dates: start: 20230630
  2. PACLITAXEL [Suspect]
     Active Substance: PACLITAXEL
     Indication: Lymphangiosis carcinomatosa
     Dosage: 130 MILLIGRAM/SQ. METER, ON DAYS 1 AND 8 OF A 3-WEEK CYCLE
     Route: 042
     Dates: start: 20230630

REACTIONS (3)
  - Therapy partial responder [Unknown]
  - Palmar-plantar erythrodysaesthesia syndrome [Unknown]
  - Condition aggravated [Unknown]
